FAERS Safety Report 21930295 (Version 1)
Quarter: 2023Q1

REPORT INFORMATION
  Report Type: Spontaneous
  Country: NL (occurrence: NL)
  Receive Date: 20230131
  Receipt Date: 20230131
  Transmission Date: 20230417
  Serious: Yes (Other)
  Sender: FDA-Public Use
  Company Number: NL-LRB-00861630

PATIENT
  Sex: Female
  Weight: 70 kg

DRUGS (1)
  1. ACETAMINOPHEN ASPIRIN CAFFEINE [Suspect]
     Active Substance: ACETAMINOPHEN\ASPIRIN\CAFFEINE
     Indication: Pain
     Dosage: 1 DOSAGE FORM, TWO TIMES A DAY (2 PER DAY)
     Route: 065
     Dates: start: 20230101

REACTIONS (2)
  - Foetal death [Unknown]
  - Maternal exposure during pregnancy [Unknown]
